FAERS Safety Report 6154285-4 (Version None)
Quarter: 2009Q2

REPORT INFORMATION
  Report Type: 
  Country: None (occurrence: None)
  Receive Date: 20090410
  Receipt Date: 20090331
  Transmission Date: 20091009
  Serious: Yes (Hospitalization, Other)
  Sender: FDA-Public Use
  Company Number: 2007-00174

PATIENT
  Age: 56 Year
  Sex: Female
  Weight: 47 kg

DRUGS (8)
  1. VELCADE [Suspect]
     Indication: T-CELL LYMPHOMA
     Dosage: 2200.00 UG, INTRAVENOUS
     Route: 042
     Dates: start: 20061201, end: 20070112
  2. DOXORUBICIN HCL [Suspect]
     Indication: T-CELL LYMPHOMA
     Dosage: 111.00 MG, INTRAVENOUS
     Route: 042
     Dates: start: 20061201, end: 20070108
  3. CYCLOPHOSPHAMIDE [Suspect]
     Indication: T-CELL LYMPHOMA
     Dosage: 1776.00 MG, INTRAVENOUS
     Route: 042
     Dates: start: 20061202, end: 20070108
  4. ELDISINE [Suspect]
     Indication: T-CELL LYMPHOMA
     Dosage: 3.00 MG, INTRAVENOUS
     Route: 042
     Dates: start: 20061201, end: 20070112
  5. BLEOMYCIN SULFATE [Suspect]
     Indication: T-CELL LYMPHOMA
     Dosage: 10.00 MG, INTRAVENOUS
     Route: 042
     Dates: start: 20061201, end: 20070112
  6. METHOTREXATE [Suspect]
     Indication: T-CELL LYMPHOMA
     Dosage: 15.00 MG, INTRATHECAL
     Route: 037
     Dates: start: 20061202, end: 20070112
  7. PREDNISONE TAB [Suspect]
     Indication: T-CELL LYMPHOMA
     Dosage: 89.00 MG, ORAL
     Route: 048
     Dates: start: 20061201, end: 20070112
  8. GRANOCYTE 13-34(LENOGRASTIM) [Suspect]
     Indication: T-CELL LYMPHOMA

REACTIONS (6)
  - APHTHOUS STOMATITIS [None]
  - FEBRILE BONE MARROW APLASIA [None]
  - FEBRILE NEUTROPENIA [None]
  - OESOPHAGEAL CANDIDIASIS [None]
  - ORAL CANDIDIASIS [None]
  - WEIGHT DECREASED [None]
